FAERS Safety Report 8911905 (Version 1)
Quarter: 2012Q4

REPORT INFORMATION
  Report Type: Spontaneous
  Country: US (occurrence: None)
  Receive Date: 20121113
  Receipt Date: 20121113
  Transmission Date: 20130627
  Serious: Yes (Hospitalization, Disabling, Other)
  Sender: FDA-Public Use
  Company Number: 2012P1061762

PATIENT
  Age: 80 Year
  Sex: Female
  Weight: 81.65 kg

DRUGS (6)
  1. FENTANYL PATCH 25 MCG/HR (NO PREF. NAME) [Suspect]
     Route: 062
     Dates: start: 201209
  2. DIOVAN [Concomitant]
  3. NORVASC [Concomitant]
  4. MELOXICAM [Concomitant]
  5. METOPROLOL [Concomitant]
  6. OXYCODONE [Concomitant]

REACTIONS (4)
  - Drug effect decreased [None]
  - Pain [None]
  - Bursitis [None]
  - Abasia [None]
